FAERS Safety Report 15552088 (Version 2)
Quarter: 2018Q4

REPORT INFORMATION
  Report Type: Spontaneous
  Country: US (occurrence: US)
  Receive Date: 20181025
  Receipt Date: 20181029
  Transmission Date: 20190205
  Serious: No
  Sender: FDA-Public Use
  Company Number: US-PFIZER INC-2018428337

PATIENT
  Age: 81 Year
  Sex: Male
  Weight: 77 kg

DRUGS (2)
  1. ARIMIDEX [Concomitant]
     Active Substance: ANASTROZOLE
     Indication: BREAST CANCER MALE
     Dosage: 1 MG, 1X/DAY
     Route: 048
     Dates: start: 201805
  2. IBRANCE [Suspect]
     Active Substance: PALBOCICLIB
     Indication: BREAST CANCER MALE
     Dosage: 125 MG, CYCLIC (DAILY FOR 21 DAYS)
     Route: 048

REACTIONS (1)
  - Product use issue [Unknown]
